FAERS Safety Report 13981235 (Version 1)
Quarter: 2017Q3

REPORT INFORMATION
  Report Type: Spontaneous
  Country: US (occurrence: US)
  Receive Date: 20170915
  Receipt Date: 20170915
  Transmission Date: 20171128
  Serious: Yes (Life-Threatening, Hospitalization, Other)
  Sender: FDA-Public Use
  Company Number: None

PATIENT
  Age: 2 Day
  Sex: Male
  Weight: .8 kg

DRUGS (2)
  1. INDOMETHACIN. [Suspect]
     Active Substance: INDOMETHACIN
     Indication: PROPHYLAXIS
  2. INDOMETHACIN. [Suspect]
     Active Substance: INDOMETHACIN
     Indication: INTRAVENTRICULAR HAEMORRHAGE

REACTIONS (2)
  - Intestinal fistula [None]
  - Intestinal perforation [None]

NARRATIVE: CASE EVENT DATE: 20170519
